FAERS Safety Report 8876967 (Version 1)
Quarter: 2012Q4

REPORT INFORMATION
  Report Type: 
  Country: IT (occurrence: IT)
  Receive Date: 20121030
  Receipt Date: 20121030
  Transmission Date: 20130627
  Serious: Yes (Life-Threatening)
  Sender: FDA-Public Use
  Company Number: IT-MYLANLABS-2012S1021835

PATIENT
  Age: 57 Year
  Sex: Female

DRUGS (2)
  1. METFORMIN [Suspect]
     Indication: HYPERGLYCAEMIA
     Dates: start: 20110120, end: 20121021
  2. METFORMIN [Suspect]
     Indication: SELF-MEDICATION
     Dates: start: 20110120, end: 20121021

REACTIONS (4)
  - Lactic acidosis [Unknown]
  - Hypoglycaemia [Unknown]
  - Self-medication [Unknown]
  - Drug abuse [Unknown]
